FAERS Safety Report 7663876-0 (Version None)
Quarter: 2011Q3

REPORT INFORMATION
  Report Type: 
  Country: None (occurrence: None)
  Receive Date: 20110805
  Receipt Date: 20100805
  Transmission Date: 20111222
  Serious: No
  Sender: FDA-Public Use
  Company Number: US-ABBOTT-10P-163-0661764-00

PATIENT
  Sex: Male
  Weight: 68.1 kg

DRUGS (6)
  1. OMEPRAZOLE [Concomitant]
     Indication: PRODUCT USED FOR UNKNOWN INDICATION
     Dosage: 20MG IN THE MORNING
     Route: 048
  2. NIASPAN [Suspect]
     Indication: DYSLIPIDAEMIA
     Dosage: 1000MG AT BEDTIME
     Route: 048
     Dates: start: 20090801
  3. ASPIRIN [Concomitant]
     Indication: PRODUCT USED FOR UNKNOWN INDICATION
     Dosage: 325MG COATED ASPIRIN BEFORE DOSE OF NIASPAN
     Route: 048
  4. LIPITOR [Concomitant]
     Indication: PRODUCT USED FOR UNKNOWN INDICATION
     Route: 048
  5. LISINOPRIL [Concomitant]
     Indication: PRODUCT USED FOR UNKNOWN INDICATION
     Dosage: 5MG X 1/2 IN MORNING
     Route: 048
  6. CARVEDILOL [Concomitant]
     Indication: PRODUCT USED FOR UNKNOWN INDICATION
     Dosage: 3.125MG X 1/2 IN MORNING 1/2 IN AFTERNOON
     Route: 048

REACTIONS (1)
  - FLUSHING [None]
